FAERS Safety Report 4657001-8 (Version None)
Quarter: 2005Q2

REPORT INFORMATION
  Report Type: 
  Country: None (occurrence: None)
  Receive Date: 20050506
  Receipt Date: 20050422
  Transmission Date: 20051028
  Serious: Yes (Other)
  Sender: FDA-Public Use
  Company Number: L05-USA-01563-03

PATIENT
  Age: 62 Year
  Sex: Female

DRUGS (3)
  1. DILTIAZEM [Suspect]
     Dosage: 240 MG QD
  2. ENALAPRIL MALEATE [Suspect]
  3. INDAPAMIDE [Suspect]

REACTIONS (4)
  - BLOOD PRESSURE INCREASED [None]
  - EXTRASYSTOLES [None]
  - NODAL ARRHYTHMIA [None]
  - SINUS BRADYCARDIA [None]
